FAERS Safety Report 7126697-3 (Version None)
Quarter: 2010Q4

REPORT INFORMATION
  Report Type: 
  Country: None (occurrence: None)
  Receive Date: 20101129
  Receipt Date: 20101116
  Transmission Date: 20110411
  Serious: Yes (Hospitalization)
  Sender: FDA-Public Use
  Company Number: FR-ROCHE-737537

PATIENT
  Sex: Female
  Weight: 53 kg

DRUGS (9)
  1. TOCILIZUMAB [Suspect]
     Indication: RHEUMATOID ARTHRITIS
     Dosage: LOADING DOSE: 8 MG/KG  LAST DOSE PRIOR TO SAE: 27 JULY 2010
     Route: 042
     Dates: start: 20091117
  2. METHOTREXATE [Concomitant]
     Dates: start: 20060401
  3. CORTANCYL [Concomitant]
     Dates: start: 20060401
  4. SPECIAFOLDINE [Concomitant]
     Dates: start: 20090912
  5. DOLIPRANE [Concomitant]
     Dates: start: 20090910
  6. CACIT D3 [Concomitant]
     Dates: start: 20090930
  7. CONTRAMAL [Concomitant]
     Dates: start: 20090901
  8. MOTILIUM [Concomitant]
     Dates: start: 20090910
  9. SEROPRAM [Concomitant]
     Dates: start: 20100610

REACTIONS (2)
  - PYREXIA [None]
  - SCIATICA [None]
